FAERS Safety Report 25345817 (Version 3)
Quarter: 2025Q3

REPORT INFORMATION
  Report Type: Report from Study
  Country: CA (occurrence: CA)
  Receive Date: 20250522
  Receipt Date: 20250730
  Transmission Date: 20251020
  Serious: Yes (Death, Hospitalization, Other)
  Sender: JOHNSON AND JOHNSON
  Company Number: CA-JNJFOC-20250521136

PATIENT
  Age: 75 Year
  Sex: Male

DRUGS (3)
  1. AKEEGA [Suspect]
     Active Substance: ABIRATERONE ACETATE\NIRAPARIB TOSYLATE MONOHYDRATE
     Indication: Hormone-refractory prostate cancer
     Dosage: 100MG/500MG - 2 TABLETS DAILY (=200MG/1000MG)
     Route: 048
  2. AKEEGA [Suspect]
     Active Substance: ABIRATERONE ACETATE\NIRAPARIB TOSYLATE MONOHYDRATE
     Dosage: AKEEGA 100MG/500MG - TAKE 2 TABLETS BY MOUTH ONCE DAILY ON AN EMPTY STOMACH. TAKE 1 HOUR BEFORE OR 2
     Route: 048
  3. PREDNISONE [Concomitant]
     Active Substance: PREDNISONE
     Indication: Product used for unknown indication
     Route: 048

REACTIONS (2)
  - Death [Fatal]
  - Myocardial infarction [Recovering/Resolving]

NARRATIVE: CASE EVENT DATE: 20250514
